FAERS Safety Report 5692854-6 (Version None)
Quarter: 2008Q2

REPORT INFORMATION
  Report Type: 
  Country: None (occurrence: None)
  Receive Date: 20080401
  Receipt Date: 20080319
  Transmission Date: 20081010
  Serious: Yes (Other)
  Sender: FDA-Public Use
  Company Number: 2008AL001781

PATIENT
  Age: 35 Year
  Sex: Female

DRUGS (2)
  1. PHENTERMINE HCL [Suspect]
  2. SIBUTRAMINE [Concomitant]

REACTIONS (2)
  - HYPOTENSION [None]
  - MYOCARDIAL INFARCTION [None]
